FAERS Safety Report 8073837-8 (Version None)
Quarter: 2012Q1

REPORT INFORMATION
  Report Type: 
  Country: None (occurrence: None)
  Receive Date: 20120126
  Receipt Date: 20120124
  Transmission Date: 20120608
  Serious: No
  Sender: FDA-Public Use
  Company Number: US-PFIZER INC-2012009861

PATIENT
  Sex: Female
  Weight: 118 kg

DRUGS (4)
  1. SIMVASTATIN [Suspect]
     Indication: VASCULAR GRAFT
     Dosage: 40 MG, 1X/DAY
     Route: 048
     Dates: start: 20110101, end: 20120112
  2. ACETYLSALICYLIC ACID [Concomitant]
     Dosage: 81 MG, UNK
  3. LISINOPRIL [Concomitant]
     Indication: CARDIAC DISORDER
     Dosage: 10 MG, UNK
  4. SIMVASTATIN [Suspect]
     Indication: MYOCARDIAL INFARCTION
     Dosage: 40 MG, 1X/DAY
     Route: 048
     Dates: start: 20110101, end: 20110101

REACTIONS (4)
  - MALAISE [None]
  - HEADACHE [None]
  - DIZZINESS [None]
  - ARTHRALGIA [None]
